FAERS Safety Report 23666320 (Version 1)
Quarter: 2024Q1

REPORT INFORMATION
  Report Type: Spontaneous
  Country: US (occurrence: US)
  Receive Date: 20240324
  Receipt Date: 20240324
  Transmission Date: 20240410
  Serious: No
  Sender: FDA-Public Use
  Company Number: None

PATIENT
  Age: 89 Year
  Sex: Male

DRUGS (1)
  1. NICOTINE [Suspect]
     Active Substance: NICOTINE
     Indication: Adverse reaction
     Dosage: 21 MILLIGRAM
     Route: 062
     Dates: start: 20240227, end: 20240228

REACTIONS (4)
  - Dysuria [Unknown]
  - Insomnia [Unknown]
  - Restless legs syndrome [Unknown]
  - Off label use [Unknown]

NARRATIVE: CASE EVENT DATE: 20240227
